FAERS Safety Report 7578885-X (Version None)
Quarter: 2011Q2

REPORT INFORMATION
  Report Type: 
  Country: None (occurrence: None)
  Receive Date: 20110628
  Receipt Date: 20110621
  Transmission Date: 20111010
  Serious: Yes (Other)
  Sender: FDA-Public Use
  Company Number: JP-PFIZER INC-2011105935

PATIENT
  Age: 67 Year
  Sex: Female

DRUGS (2)
  1. VFEND [Suspect]
     Indication: ASPERGILLOSIS
  2. VFEND [Suspect]
     Indication: ASPERGILLUS TEST POSITIVE
     Dosage: 400 MG/DAY (FREQUENCY NOT REPORTED)
     Route: 048
     Dates: start: 20110513, end: 20110515

REACTIONS (1)
  - PARALYSIS [None]
